FAERS Safety Report 8810021 (Version 1)
Quarter: 2012Q4

REPORT INFORMATION
  Report Type: 
  Country: AT (occurrence: AT)
  Receive Date: 20120926
  Receipt Date: 20120926
  Transmission Date: 20130627
  Serious: Yes (Life-Threatening, Hospitalization)
  Sender: FDA-Public Use
  Company Number: PHHY2012AT082115

PATIENT
  Sex: Female
  Weight: 60 kg

DRUGS (6)
  1. EBETREXAT [Suspect]
     Indication: RHEUMATOID ARTHRITIS
     Dates: start: 2011
  2. MABTHERA [Suspect]
     Indication: RHEUMATOID ARTHRITIS
     Dosage: every six months 1000 mg total and again 1000 mg
     Route: 042
     Dates: start: 201110, end: 201204
  3. CITALOPRAM [Concomitant]
  4. ISOPTIN [Concomitant]
  5. LEXOTANIL [Concomitant]
  6. FORSTEO [Concomitant]

REACTIONS (1)
  - Pelvic venous thrombosis [Not Recovered/Not Resolved]
